FAERS Safety Report 14409237 (Version 1)
Quarter: 2018Q1

REPORT INFORMATION
  Report Type: Spontaneous
  Country: RU (occurrence: RU)
  Receive Date: 20180119
  Receipt Date: 20180119
  Transmission Date: 20180509
  Serious: Yes (Other)
  Sender: FDA-Public Use
  Company Number: RU-ASTRAZENECA-2018SE04420

PATIENT
  Age: 62 Year
  Sex: Female
  Weight: 89 kg

DRUGS (2)
  1. DIABETON MB [Concomitant]
     Active Substance: GLICLAZIDE
  2. FORXIGA [Suspect]
     Active Substance: DAPAGLIFLOZIN
     Indication: TYPE 2 DIABETES MELLITUS
     Route: 048

REACTIONS (2)
  - Blood glucose increased [Not Recovered/Not Resolved]
  - Upper limb fracture [Not Recovered/Not Resolved]

NARRATIVE: CASE EVENT DATE: 20180106
